FAERS Safety Report 7114635-9 (Version None)
Quarter: 2010Q4

REPORT INFORMATION
  Report Type: 
  Country: None (occurrence: None)
  Receive Date: 20101121
  Receipt Date: 20101117
  Transmission Date: 20110411
  Serious: Yes (Other)
  Sender: FDA-Public Use
  Company Number: KR-BRISTOL-MYERS SQUIBB COMPANY-15392723

PATIENT
  Age: 12 Year
  Sex: Male

DRUGS (6)
  1. ARIPIPRAZOLE [Suspect]
     Indication: AUTISM
  2. ARIPIPRAZOLE [Suspect]
     Indication: SEVERE MENTAL RETARDATION
  3. RISPERIDONE [Suspect]
     Indication: SEVERE MENTAL RETARDATION
  4. RISPERIDONE [Suspect]
     Indication: AUTISM
  5. DIVALPROEX SODIUM [Suspect]
     Indication: AUTISM
  6. DIVALPROEX SODIUM [Suspect]
     Indication: SEVERE MENTAL RETARDATION

REACTIONS (1)
  - WITHDRAWAL SYNDROME [None]
